FAERS Safety Report 5719890-5 (Version None)
Quarter: 2008Q2

REPORT INFORMATION
  Report Type: 
  Country: None (occurrence: None)
  Receive Date: 20080428
  Receipt Date: 20070724
  Transmission Date: 20081010
  Serious: No
  Sender: FDA-Public Use
  Company Number: A0666074A

PATIENT
  Age: 56 Year
  Sex: Female

DRUGS (5)
  1. ZOFRAN [Suspect]
     Indication: PROPHYLAXIS OF NAUSEA AND VOMITING
     Dosage: 8MG THREE TIMES PER DAY
     Route: 048
     Dates: start: 20070605
  2. XELODA [Suspect]
     Dosage: 1000MG TWO TIMES PER WEEK
     Route: 048
  3. CHEMOTHERAPY [Concomitant]
     Route: 042
  4. PROTONIX [Concomitant]
  5. PANCREATIC ENZYMES [Concomitant]

REACTIONS (4)
  - DRUG INEFFECTIVE [None]
  - NAUSEA [None]
  - TUMOUR MARKER INCREASED [None]
  - WEIGHT DECREASED [None]
